FAERS Safety Report 4593473-5 (Version None)
Quarter: 2005Q1

REPORT INFORMATION
  Report Type: 
  Country: None (occurrence: None)
  Receive Date: 20050224
  Receipt Date: 20040721
  Transmission Date: 20050727
  Serious: No
  Sender: FDA-Public Use
  Company Number: US-BRISTOL-MYERS SQUIBB COMPANY-12647681

PATIENT
  Age: 46 Year
  Sex: Male
  Weight: 76 kg

DRUGS (2)
  1. EXCEDRIN PM TABS [Suspect]
     Indication: HEADACHE
     Dosage: DOSAGE: 5 TABLETS BEFORE DINNER AND 9 TABLETS AFTER DINNER
     Route: 048
     Dates: start: 19980101
  2. EXCEDRIN (MIGRAINE) [Suspect]
     Indication: HEADACHE
     Dosage: DOSAGE: 4 TABLETS DAILY IN THE MORNING
     Route: 048
     Dates: start: 19980101

REACTIONS (1)
  - MEDICATION ERROR [None]
